FAERS Safety Report 4526035-6 (Version None)
Quarter: 2004Q4

REPORT INFORMATION
  Report Type: 
  Country: None (occurrence: None)
  Receive Date: 20041129
  Receipt Date: 20040901
  Transmission Date: 20050328
  Serious: Yes (Hospitalization, Other)
  Sender: FDA-Public Use
  Company Number: USA040877023

PATIENT
  Age: 82 Year
  Sex: Female

DRUGS (7)
  1. ZYPREXA [Suspect]
  2. DIGOXIN [Concomitant]
  3. MONOPRIL [Concomitant]
  4. FUROSEMIDE [Concomitant]
  5. KLOR-CON [Concomitant]
  6. WARFARIN SODIUM [Concomitant]
  7. LEVAQUIN [Concomitant]

REACTIONS (4)
  - ABDOMINAL PAIN UPPER [None]
  - CARDIAC FAILURE CONGESTIVE [None]
  - OEDEMA PERIPHERAL [None]
  - PANCREATITIS [None]
